FAERS Safety Report 4724879-9 (Version None)
Quarter: 2005Q3

REPORT INFORMATION
  Report Type: 
  Country: None (occurrence: None)
  Receive Date: 20050720
  Receipt Date: 20050720
  Transmission Date: 20060218
  Serious: Yes (Other)
  Sender: FDA-Public Use
  Company Number: None

PATIENT
  Age: 2 Year
  Sex: Male
  Weight: 10.4327 kg

DRUGS (1)
  1. ELIDEL [Suspect]
     Indication: ECZEMA
     Dosage: 2/DAY SUBCUTANEOUS
     Route: 058
     Dates: start: 20041001, end: 20050223

REACTIONS (1)
  - PYREXIA [None]
